FAERS Safety Report 7336069-4 (Version None)
Quarter: 2011Q1

REPORT INFORMATION
  Report Type: 
  Country: None (occurrence: None)
  Receive Date: 20110307
  Receipt Date: 20110223
  Transmission Date: 20110831
  Serious: Yes (Other)
  Sender: FDA-Public Use
  Company Number: US-BAYER-2011-017703

PATIENT

DRUGS (1)
  1. KOGENATE FS [Suspect]
     Dosage: UNK

REACTIONS (4)
  - RASH GENERALISED [None]
  - SWELLING FACE [None]
  - EYE SWELLING [None]
  - HYPERSENSITIVITY [None]
